FAERS Safety Report 4471103-0 (Version None)
Quarter: 2004Q4

REPORT INFORMATION
  Report Type: 
  Country: None (occurrence: None)
  Receive Date: 20041011
  Receipt Date: 20040915
  Transmission Date: 20050328
  Serious: Yes (Hospitalization)
  Sender: FDA-Public Use
  Company Number: PHBS2004NL12405

PATIENT
  Age: 82 Year
  Sex: Female

DRUGS (6)
  1. HYDROCHLOROTHIAZIDE [Suspect]
     Indication: HYPERTENSION
  2. TOLBUTAMIDE [Concomitant]
  3. ACENOCOUMAROL [Concomitant]
  4. DIGOXIN [Concomitant]
  5. CARBAMAZEPINE [Suspect]
  6. PAROXETINE [Suspect]
     Indication: DEPRESSION

REACTIONS (3)
  - BLOOD POTASSIUM DECREASED [None]
  - DEPRESSED LEVEL OF CONSCIOUSNESS [None]
  - HYPONATRAEMIA [None]
